FAERS Safety Report 4799785-4 (Version None)
Quarter: 2005Q4

REPORT INFORMATION
  Report Type: 
  Country: None (occurrence: None)
  Receive Date: 20051011
  Receipt Date: 20051011
  Transmission Date: 20060501
  Serious: Yes (Life-Threatening, Hospitalization, Other)
  Sender: FDA-Public Use
  Company Number: None

PATIENT
  Age: 27 Year
  Sex: Female
  Weight: 70 kg

DRUGS (1)
  1. ORTHO EVRA [Suspect]
     Dates: start: 20041001, end: 20050301

REACTIONS (2)
  - FURUNCLE [None]
  - JUGULAR VEIN THROMBOSIS [None]
